FAERS Safety Report 17715345 (Version 6)
Quarter: 2022Q3

REPORT INFORMATION
  Report Type: Spontaneous
  Country: GB (occurrence: GB)
  Receive Date: 20200427
  Receipt Date: 20220802
  Transmission Date: 20221027
  Serious: Yes (Hospitalization)
  Sender: FDA-Public Use
  Company Number: NVSC2020GB110109

PATIENT
  Age: 70 Year
  Sex: Female

DRUGS (23)
  1. DOCETAXEL [Suspect]
     Active Substance: DOCETAXEL
     Indication: Breast cancer metastatic
     Dosage: 132 MG, QW
     Route: 042
     Dates: start: 20160728, end: 20160803
  2. DOCETAXEL [Suspect]
     Active Substance: DOCETAXEL
     Dosage: 132 MG, QW
     Route: 042
     Dates: start: 20160803
  3. PERTUZUMAB [Suspect]
     Active Substance: PERTUZUMAB
     Indication: HER2 positive breast cancer
     Dosage: 840 MG, QD (NUMBER OF CYCLES PER REGIMEN: 6, 840 MG 1 DAYS)
     Route: 042
     Dates: start: 20160728, end: 20160728
  4. PERTUZUMAB [Suspect]
     Active Substance: PERTUZUMAB
     Dosage: 420 MG, TIW (UMBER OF CYCLES PER REGIMEN: 6, 420 MG 3 WEEKS)
     Route: 042
     Dates: start: 20160803
  5. TRASTUZUMAB [Suspect]
     Active Substance: TRASTUZUMAB
     Indication: HER2 positive breast cancer
     Dosage: 546 MG, QD (NUMBER OF CYCLES PER REGIMEN: 6, 546 MG 1 DAYS)
     Route: 042
     Dates: start: 20160628, end: 20160628
  6. TRASTUZUMAB [Suspect]
     Active Substance: TRASTUZUMAB
     Dosage: 399 MG, TIW (NUMBER OF CYCLES PER REGIMEN: 6, 399 MG 3 WEEKS)
     Route: 042
     Dates: start: 20160803, end: 20160824
  7. TRASTUZUMAB [Suspect]
     Active Substance: TRASTUZUMAB
     Dosage: 399 MG, TIW (NUMBER OF CYCLES PER REGIMEN: 6)
     Route: 042
     Dates: start: 20160824
  8. TRASTUZUMAB [Suspect]
     Active Substance: TRASTUZUMAB
     Dosage: 357 MG, TIW (NUMBER OF CYCLES PER REGIMEN: 6, 357 MG 3 WEEKS)
     Route: 042
     Dates: start: 20160921
  9. FASLODEX [Suspect]
     Active Substance: FULVESTRANT
     Indication: Product used for unknown indication
     Dosage: 500 MG, BIW
     Route: 030
     Dates: start: 20170130, end: 20170228
  10. PIPERACILLIN SODIUM\TAZOBACTAM SODIUM [Concomitant]
     Active Substance: PIPERACILLIN SODIUM\TAZOBACTAM SODIUM
     Indication: Product used for unknown indication
     Dosage: 13.5 MILLIGRAM DAILY; 13.5 MG, QD
     Route: 042
     Dates: start: 20160811
  11. PIPERACILLIN SODIUM\TAZOBACTAM SODIUM [Concomitant]
     Active Substance: PIPERACILLIN SODIUM\TAZOBACTAM SODIUM
     Dosage: 4.5 MG
     Route: 042
     Dates: start: 20160811, end: 20160813
  12. PIPERACILLIN SODIUM\TAZOBACTAM SODIUM [Concomitant]
     Active Substance: PIPERACILLIN SODIUM\TAZOBACTAM SODIUM
     Dosage: 13.5 MILLIGRAM DAILY; 13.5 MG, QD
     Route: 042
     Dates: start: 20160813
  13. PIPERACILLIN SODIUM\TAZOBACTAM SODIUM [Concomitant]
     Active Substance: PIPERACILLIN SODIUM\TAZOBACTAM SODIUM
     Dosage: 5 MG
     Route: 042
     Dates: start: 20160811, end: 20160813
  14. CALCIUM\CHOLECALCIFEROL [Concomitant]
     Active Substance: CALCIUM\CHOLECALCIFEROL
     Indication: Vitamin D deficiency
     Dosage: 1 DF, QD (1 TABLET EVERY NIGHT (ON))
     Route: 048
  15. CALCIUM\CHOLECALCIFEROL [Concomitant]
     Active Substance: CALCIUM\CHOLECALCIFEROL
     Indication: Calcium deficiency
  16. ALBUTEROL [Concomitant]
     Active Substance: ALBUTEROL
     Indication: Asthma
     Dosage: 2 DF, QD (2 PUFFS QDS WHEN NECESSARY)
     Route: 048
  17. ALBUTEROL [Concomitant]
     Active Substance: ALBUTEROL
     Dosage: 1 DF (1 PUFF)
     Route: 048
  18. RANITIDINE [Concomitant]
     Active Substance: RANITIDINE
     Indication: Product used for unknown indication
     Dosage: 300 MG, QD
     Route: 048
     Dates: start: 20160811
  19. RANITIDINE [Concomitant]
     Active Substance: RANITIDINE
     Dosage: 150 MG, BID
     Route: 048
     Dates: start: 20160811
  20. AMOXICILLIN\CLAVULANIC ACID [Concomitant]
     Active Substance: AMOXICILLIN\CLAVULANIC ACID
     Indication: Product used for unknown indication
     Dosage: 625 MG (OVER THE COURSE OF 4 DAYS)
     Route: 048
     Dates: start: 20160815, end: 20160819
  21. CYCLIZINE [Concomitant]
     Active Substance: CYCLIZINE
     Indication: Nausea
     Dosage: 50 MG
     Route: 048
  22. DIHYDROCODEINE [Concomitant]
     Active Substance: DIHYDROCODEINE
     Indication: Pain
     Dosage: 30 MG
     Route: 048
     Dates: start: 20161116
  23. POLYETHYLENE GLYCOL 3350\POTASSIUM CHLORIDE\SODIUM BICARBONATE\SODIUM [Concomitant]
     Active Substance: POLYETHYLENE GLYCOL 3350\POTASSIUM CHLORIDE\SODIUM BICARBONATE\SODIUM CHLORIDE
     Indication: Diarrhoea
     Dosage: 2 OT, QD (1 OTHER SACHET)
     Route: 048
     Dates: start: 20161121, end: 20161122

REACTIONS (6)
  - Abdominal pain [Unknown]
  - Biliary sepsis [Recovered/Resolved with Sequelae]
  - Off label use [Unknown]
  - Overflow diarrhoea [Recovered/Resolved]
  - Constipation [Recovered/Resolved]
  - Abdominal pain lower [Unknown]

NARRATIVE: CASE EVENT DATE: 20160907
